FAERS Safety Report 19788988 (Version 1)
Quarter: 2021Q3

REPORT INFORMATION
  Report Type: Spontaneous
  Country: US (occurrence: US)
  Receive Date: 20210905
  Receipt Date: 20210905
  Transmission Date: 20211014
  Serious: No
  Sender: FDA-Public Use
  Company Number: US-JNJFOC-20210854694

PATIENT
  Sex: Female

DRUGS (1)
  1. SIMPONI ARIA [Suspect]
     Active Substance: GOLIMUMAB
     Indication: RHEUMATOID ARTHRITIS
     Route: 042
     Dates: start: 2020, end: 2020

REACTIONS (7)
  - Peripheral swelling [Unknown]
  - Dyspnoea [Unknown]
  - Dyscalculia [Unknown]
  - Arthralgia [Unknown]
  - Chest pain [Unknown]
  - Condition aggravated [Unknown]
  - Fatigue [Unknown]
